FAERS Safety Report 12712261 (Version 3)
Quarter: 2016Q4

REPORT INFORMATION
  Report Type: Report from Study
  Country: None (occurrence: RO)
  Receive Date: 20160902
  Receipt Date: 20161028
  Transmission Date: 20170207
  Serious: Yes (Death, Hospitalization, Other)
  Sender: FDA-Public Use
  Company Number: RO-ABBVIE-16K-135-1712920-00

PATIENT
  Age: 57 Year
  Sex: Female

DRUGS (7)
  1. SERLIFT [Concomitant]
     Active Substance: SERTRALINE HYDROCHLORIDE
     Indication: PRODUCT USED FOR UNKNOWN INDICATION
     Dates: start: 2014
  2. VIREGYT [Concomitant]
     Indication: PRODUCT USED FOR UNKNOWN INDICATION
     Dates: start: 2014
  3. DUODOPA [Suspect]
     Active Substance: CARBIDOPA\LEVODOPA
     Indication: PARKINSON^S DISEASE
     Dosage: MD-10 ML, CR-4.4 ML/H, ED-1.5 ML, 16/24
     Route: 050
     Dates: start: 20140922
  4. LEXOTAN [Concomitant]
     Active Substance: BROMAZEPAM
     Indication: PRODUCT USED FOR UNKNOWN INDICATION
     Dates: start: 2014
  5. AZILECT [Concomitant]
     Active Substance: RASAGILINE MESYLATE
     Indication: PRODUCT USED FOR UNKNOWN INDICATION
     Dates: start: 2014
  6. RIVOTRIL [Concomitant]
     Active Substance: CLONAZEPAM
     Indication: PRODUCT USED FOR UNKNOWN INDICATION
     Dates: start: 2014
  7. GABARAN [Concomitant]
     Indication: PRODUCT USED FOR UNKNOWN INDICATION
     Dates: start: 2014

REACTIONS (20)
  - Dysphagia [Not Recovered/Not Resolved]
  - Migraine [Unknown]
  - Pneumonia [Recovering/Resolving]
  - Mobility decreased [Unknown]
  - Death [Fatal]
  - Decubitus ulcer [Not Recovered/Not Resolved]
  - Seizure [Not Recovered/Not Resolved]
  - Hypotension [Unknown]
  - Diet refusal [Not Recovered/Not Resolved]
  - Weight decreased [Unknown]
  - Oxygen saturation decreased [Unknown]
  - Eschar [Not Recovered/Not Resolved]
  - General physical health deterioration [Not Recovered/Not Resolved]
  - Drug ineffective [Not Recovered/Not Resolved]
  - Activities of daily living impaired [Not Recovered/Not Resolved]
  - Obsessive-compulsive disorder [Unknown]
  - Gambling disorder [Unknown]
  - Coma [Unknown]
  - Dystonia [Unknown]
  - General physical health deterioration [Not Recovered/Not Resolved]

NARRATIVE: CASE EVENT DATE: 201607
